FAERS Safety Report 19925374 (Version 1)
Quarter: 2021Q4

REPORT INFORMATION
  Report Type: Spontaneous
  Country: FI (occurrence: FI)
  Receive Date: 20211006
  Receipt Date: 20211006
  Transmission Date: 20220303
  Serious: Yes (Life-Threatening)
  Sender: FDA-Public Use
  Company Number: None

PATIENT
  Age: 78 Year
  Sex: Female

DRUGS (6)
  1. OLANZAPINE [Interacting]
     Active Substance: OLANZAPINE
     Indication: Schizophrenia
     Dosage: 30 MG, DAILY
     Route: 048
     Dates: end: 20210902
  2. XARELTO [Interacting]
     Active Substance: RIVAROXABAN
     Indication: Pulmonary embolism
     Dosage: 20 MG, DAILY
     Route: 048
     Dates: start: 202107
  3. CHLORPROMAZINE HYDROCHLORIDE [Interacting]
     Active Substance: CHLORPROMAZINE HYDROCHLORIDE
     Indication: Schizophrenia
     Dosage: 300 MG, DAILY
     Route: 048
     Dates: end: 20210902
  4. LACTULOSE [Concomitant]
     Active Substance: LACTULOSE
     Indication: Product used for unknown indication
     Dosage: UNK UNK, PRN
     Route: 048
  5. POTASSIUM CHLORIDE [Concomitant]
     Active Substance: POTASSIUM CHLORIDE
     Indication: Product used for unknown indication
     Dosage: UNK, PRN
     Route: 048
  6. LORAZEPAM [Concomitant]
     Active Substance: LORAZEPAM
     Indication: Restlessness
     Dosage: 2 MG, DAILY
     Route: 048

REACTIONS (4)
  - Muscle contractions involuntary [Recovering/Resolving]
  - Neuroleptic malignant syndrome [Recovering/Resolving]
  - Pyrexia [Recovering/Resolving]
  - Drug interaction [Recovering/Resolving]

NARRATIVE: CASE EVENT DATE: 20210701
